FAERS Safety Report 17533155 (Version 1)
Quarter: 2020Q1

REPORT INFORMATION
  Report Type: Spontaneous
  Country: US (occurrence: US)
  Receive Date: 20200312
  Receipt Date: 20200312
  Transmission Date: 20200409
  Serious: Yes (Other)
  Sender: FDA-Public Use
  Company Number: NVSC2020US064646

PATIENT
  Age: 58 Year
  Sex: Male

DRUGS (1)
  1. RYDAPT [Suspect]
     Active Substance: MIDOSTAURIN
     Indication: SYSTEMIC MASTOCYTOSIS
     Dosage: 100 MG, BID
     Route: 048

REACTIONS (4)
  - Cytopenia [Recovering/Resolving]
  - Platelet count decreased [Recovered/Resolved]
  - Eosinophilia [Recovered/Resolved]
  - Haemoglobin decreased [Recovering/Resolving]
